FAERS Safety Report 16736079 (Version 3)
Quarter: 2019Q4

REPORT INFORMATION
  Report Type: Report from Study
  Country: US (occurrence: US)
  Receive Date: 20190823
  Receipt Date: 20191111
  Transmission Date: 20200122
  Serious: No
  Sender: FDA-Public Use
  Company Number: US-THERATECHNOLOGIES, INC.-TH-2019-00116

PATIENT

DRUGS (2)
  1. EGRIFTA [Suspect]
     Active Substance: TESAMORELIN
     Dosage: UNK
     Dates: start: 201907
  2. VITAMIN B [Concomitant]
     Active Substance: VITAMIN B
     Indication: FATIGUE
     Dosage: UNK

REACTIONS (5)
  - Wrong technique in product usage process [None]
  - Back pain [Recovered/Resolved]
  - Fatigue [Recovered/Resolved]
  - Myalgia [Unknown]
  - Drug ineffective [Unknown]

NARRATIVE: CASE EVENT DATE: 201907
